FAERS Safety Report 17854528 (Version 3)
Quarter: 2020Q3

REPORT INFORMATION
  Report Type: Spontaneous
  Country: DE (occurrence: DE)
  Receive Date: 20200603
  Receipt Date: 20200707
  Transmission Date: 20201103
  Serious: Yes (Hospitalization, Other)
  Sender: FDA-Public Use
  Company Number: NVSC2020DE150972

PATIENT
  Sex: Male

DRUGS (1)
  1. ACETAMINOPHEN (PARACETAMOL) [Suspect]
     Active Substance: ACETAMINOPHEN
     Indication: TOOTHACHE
     Dosage: 7.5 G (TO 107 MG/KG BODY WEIGHT/ DAY OVER 2 DAYS )
     Route: 065

REACTIONS (5)
  - Overdose [Recovering/Resolving]
  - Petechiae [Unknown]
  - Hepatic failure [Recovered/Resolved]
  - Intentional overdose [Unknown]
  - Haemorrhage [Unknown]
